FAERS Safety Report 6797664 (Version 4)
Quarter: 2017Q1

REPORT INFORMATION
  Report Type: Spontaneous
  Country: JP (occurrence: JP)
  Receive Date: 20081028
  Receipt Date: 20170208
  Transmission Date: 20170429
  Serious: Yes (Hospitalization, Other)
  Sender: FDA-Public Use
  Company Number: JP-BRISTOL-MYERS SQUIBB COMPANY-14381966

PATIENT
  Age: 77 Year
  Sex: Male

DRUGS (12)
  1. ZOFRAN [Concomitant]
     Active Substance: ONDANSETRON HYDROCHLORIDE
     Indication: PRODUCT USED FOR UNKNOWN INDICATION
     Dosage: 4 MG, QD
     Route: 042
     Dates: start: 20060522, end: 20060602
  2. EVIPROSTAT [Concomitant]
     Active Substance: CHIMAPHILA UMBELLATA\MANGANESE CHLORIDE\POPULUS TREMULOIDES\SODIUM TAUROCHOLATE
     Indication: PRODUCT USED FOR UNKNOWN INDICATION
     Dosage: UNK
     Route: 048
     Dates: start: 2003, end: 20060526
  3. KYTRIL [Concomitant]
     Active Substance: GRANISETRON HYDROCHLORIDE
     Indication: PRODUCT USED FOR UNKNOWN INDICATION
     Dosage: 3 MG, QD
     Route: 042
     Dates: start: 20060626, end: 20060821
  4. UNIPHYL [Concomitant]
     Active Substance: THEOPHYLLINE ANHYDROUS
     Indication: PRODUCT USED FOR UNKNOWN INDICATION
     Dosage: 400 MG, QD
     Route: 048
     Dates: start: 20060428, end: 20060602
  5. NEUTROGIN [Concomitant]
     Active Substance: LENOGRASTIM
     Indication: PRODUCT USED FOR UNKNOWN INDICATION
     Dosage: 100 ?G, QD
     Route: 058
     Dates: start: 20060529, end: 20060531
  6. HARNAL [Concomitant]
     Active Substance: TAMSULOSIN HYDROCHLORIDE
     Indication: PRODUCT USED FOR UNKNOWN INDICATION
     Dosage: .2 MG, QD
     Route: 048
     Dates: start: 2003, end: 20080904
  7. BRIPLATIN [Suspect]
     Active Substance: CISPLATIN
     Indication: LUNG ADENOCARCINOMA
     Dosage: 120 MG, QMO
     Route: 041
     Dates: start: 20060522, end: 20060522
  8. PARAPLATIN [Suspect]
     Active Substance: CARBOPLATIN
     Indication: LUNG ADENOCARCINOMA
     Dosage: LAST DOSE: 21-AUG-2006, THERAPY DURATION: 3 DAYS
     Route: 041
     Dates: start: 20060626, end: 20060626
  9. TAXOL [Suspect]
     Active Substance: PACLITAXEL
     Indication: LUNG ADENOCARCINOMA
     Dosage: 230 MG, QMO
     Route: 041
     Dates: start: 20060626
  10. TAXOTERE [Suspect]
     Active Substance: DOCETAXEL
     Indication: LUNG ADENOCARCINOMA
     Dosage: 80 MG, QMO
     Route: 041
     Dates: start: 20060522, end: 20060522
  11. RADIOTHERAPY [Concomitant]
     Active Substance: RADIATION THERAPY
     Indication: LUNG ADENOCARCINOMA
     Dosage: 69.2GRAY/32 FRACTIONS
     Route: 065
  12. DECADRON [Concomitant]
     Active Substance: DEXAMETHASONE
     Indication: PRODUCT USED FOR UNKNOWN INDICATION
     Dosage: 16 MG, QMO
     Route: 042
     Dates: start: 20060522, end: 20060821

REACTIONS (4)
  - Interstitial lung disease [Not Recovered/Not Resolved]
  - Diarrhoea [Unknown]
  - Decreased appetite [Unknown]
  - Radiation pneumonitis [Unknown]

NARRATIVE: CASE EVENT DATE: 20060602
